FAERS Safety Report 8476916-6 (Version None)
Quarter: 2012Q2

REPORT INFORMATION
  Report Type: 
  Country: None (occurrence: None)
  Receive Date: 20120629
  Receipt Date: 20120620
  Transmission Date: 20120825
  Serious: No
  Sender: FDA-Public Use
  Company Number: US-BIOGENIDEC-2012BI022111

PATIENT
  Age: 42 Year
  Sex: Female

DRUGS (3)
  1. TYSABRI [Suspect]
     Indication: MULTIPLE SCLEROSIS
     Route: 042
     Dates: start: 20100212, end: 20120322
  2. GABAPENTIN [Concomitant]
     Indication: PAIN IN EXTREMITY
  3. BACLOFEN [Concomitant]
     Indication: MUSCLE SPASTICITY

REACTIONS (9)
  - URINARY INCONTINENCE [None]
  - SPEECH DISORDER [None]
  - FEELING HOT [None]
  - HALLUCINATION, VISUAL [None]
  - PAIN IN EXTREMITY [None]
  - FATIGUE [None]
  - URINARY RETENTION [None]
  - DYSPHEMIA [None]
  - APHASIA [None]
